FAERS Safety Report 24711613 (Version 1)
Quarter: 2024Q4

REPORT INFORMATION
  Report Type: Spontaneous
  Country: US (occurrence: US)
  Receive Date: 20241209
  Receipt Date: 20241209
  Transmission Date: 20250114
  Serious: No
  Sender: GE HEALTHCARE
  Company Number: US-GE HEALTHCARE-2024CSU011011

PATIENT
  Sex: Female

DRUGS (2)
  1. MYOVIEW [Suspect]
     Active Substance: TECHNETIUM TC-99M TETROFOSMIN
     Indication: Cardiac function test
     Dosage: 370 MBQ, TOTAL
     Route: 065
     Dates: start: 20240912, end: 20240912
  2. TECHNETIUM TC-99M [Concomitant]
     Active Substance: TECHNETIUM TC-99M
     Indication: Cardiac function test
     Dosage: UNK UNK, TOTAL
     Route: 065
     Dates: start: 20240912, end: 20240912

REACTIONS (2)
  - Product quality issue [Recovered/Resolved]
  - No adverse event [Recovered/Resolved]

NARRATIVE: CASE EVENT DATE: 20240912
